FAERS Safety Report 5242039-2 (Version None)
Quarter: 2007Q1

REPORT INFORMATION
  Report Type: 
  Country: None (occurrence: None)
  Receive Date: 20070220
  Receipt Date: 20070208
  Transmission Date: 20070707
  Serious: Yes (Death, Hospitalization, Other)
  Sender: FDA-Public Use
  Company Number: AR-PFIZER INC-2006085159

PATIENT
  Sex: Female
  Weight: 62.8 kg

DRUGS (6)
  1. SU-011,248 [Suspect]
     Indication: RENAL CELL CARCINOMA STAGE UNSPECIFIED
     Route: 048
     Dates: start: 20060609, end: 20060703
  2. SU-011,248 [Suspect]
  3. ACENOCOUMAROL [Concomitant]
     Route: 048
  4. SPIRONOLACTONE [Concomitant]
     Route: 048
  5. AMOXICILLIN [Concomitant]
     Route: 048
     Dates: start: 20060620, end: 20060630
  6. IBUPROFEN [Concomitant]
     Route: 048

REACTIONS (2)
  - HEPATITIS ACUTE [None]
  - RESPIRATORY TRACT HAEMORRHAGE [None]
